FAERS Safety Report 6873396-9 (Version None)
Quarter: 2010Q3

REPORT INFORMATION
  Report Type: 
  Country: None (occurrence: None)
  Receive Date: 20100723
  Receipt Date: 20090905
  Transmission Date: 20110219
  Serious: No
  Sender: FDA-Public Use
  Company Number: US-PFIZER INC-2008150430

PATIENT
  Sex: Male
  Weight: 93.878 kg

DRUGS (6)
  1. CHANTIX [Suspect]
     Indication: SMOKING CESSATION THERAPY
     Dosage: 0.5 MG, 1X/DAY
  2. EFFEXOR [Concomitant]
     Indication: DEPRESSION
     Dosage: UNK
  3. EFFEXOR [Concomitant]
     Indication: MOOD SWINGS
  4. EFFEXOR [Concomitant]
     Indication: MANIA
  5. LISINOPRIL [Concomitant]
     Indication: HYPERTENSION
     Dosage: UNK
  6. INSULIN [Concomitant]
     Dosage: UNK

REACTIONS (6)
  - ANGER [None]
  - DRUG INEFFECTIVE [None]
  - INTENTIONAL DRUG MISUSE [None]
  - MOOD SWINGS [None]
  - NAUSEA [None]
  - STRESS [None]
